FAERS Safety Report 6738945-X (Version None)
Quarter: 2010Q2

REPORT INFORMATION
  Report Type: 
  Country: None (occurrence: None)
  Receive Date: 20100524
  Receipt Date: 20100517
  Transmission Date: 20101027
  Serious: Yes (Other)
  Sender: FDA-Public Use
  Company Number: GB-AMGEN-KDL412330

PATIENT
  Sex: Female

DRUGS (2)
  1. ARANESP [Suspect]
     Indication: RENAL FAILURE CHRONIC
     Route: 058
     Dates: start: 20091001, end: 20100501
  2. LASIX [Concomitant]
     Dates: start: 20100101

REACTIONS (4)
  - BLISTER [None]
  - HYPERSENSITIVITY [None]
  - RASH [None]
  - SKIN BURNING SENSATION [None]
